FAERS Safety Report 8536175-2 (Version None)
Quarter: 2012Q3

REPORT INFORMATION
  Report Type: 
  Country: None (occurrence: None)
  Receive Date: 20120725
  Receipt Date: 20120711
  Transmission Date: 20120928
  Serious: No
  Sender: FDA-Public Use
  Company Number: CN-ELI_LILLY_AND_COMPANY-CN201207004455

PATIENT
  Age: 44 Year
  Sex: Male

DRUGS (1)
  1. CYMBALTA [Suspect]
     Indication: DEPRESSION
     Dosage: 60 MG, QD
     Route: 048

REACTIONS (5)
  - NIGHTMARE [None]
  - FACIAL SPASM [None]
  - MUSCULOSKELETAL PAIN [None]
  - INSOMNIA [None]
  - TRANSAMINASES INCREASED [None]
